FAERS Safety Report 4568132-5 (Version None)
Quarter: 2005Q1

REPORT INFORMATION
  Report Type: 
  Country: None (occurrence: None)
  Receive Date: 20050202
  Receipt Date: 20050126
  Transmission Date: 20050727
  Serious: Yes (Hospitalization)
  Sender: FDA-Public Use
  Company Number: US-BRISTOL-MYERS SQUIBB COMPANY-12839197

PATIENT
  Age: 73 Year
  Sex: Male
  Weight: 73 kg

DRUGS (3)
  1. CETUXIMAB [Suspect]
     Indication: SQUAMOUS CELL CARCINOMA
     Dosage: DOSAGE WAS THE TOTAL DOSE ADM THIS COURSE. INITIAL TX DATE: 10-DEC-04. DOSE DELAYED FOR 7D/REDUCED.
     Route: 042
     Dates: start: 20050125, end: 20050125
  2. CISPLATIN [Suspect]
     Indication: SQUAMOUS CELL CARCINOMA
     Dosage: DOSAGE WAS THE TOTAL DOSE ADM THIS COURSE. INITIAL TX DATE: 10-DEC-04. DOSE DELAYED 7D/REDUCED.
     Route: 042
     Dates: start: 20050125, end: 20050125
  3. RADIATION THERAPY [Suspect]
     Indication: SQUAMOUS CELL CARCINOMA
     Dosage: ADM WKS 2-7,60 GY(2 GY/DAY)/TOTAL DOSE ADM TO DATE:4800 CGY/NO OF FRACTIONS:33/NO OF ELASPED DAYS:44
     Dates: start: 20050126, end: 20050126

REACTIONS (3)
  - DEHYDRATION [None]
  - MUCOSAL INFLAMMATION [None]
  - VOMITING [None]
